FAERS Safety Report 25089129 (Version 2)
Quarter: 2025Q2

REPORT INFORMATION
  Report Type: Spontaneous
  Country: US (occurrence: US)
  Receive Date: 20250318
  Receipt Date: 20250507
  Transmission Date: 20250717
  Serious: Yes (Hospitalization)
  Sender: PFIZER
  Company Number: US-PFIZER INC-202500041670

PATIENT
  Age: 19 Year
  Sex: Male
  Weight: 74.3 kg

DRUGS (1)
  1. GENOTROPIN [Suspect]
     Active Substance: SOMATROPIN
     Indication: Growth hormone deficiency
     Dosage: 0.5MG, DAILY
     Route: 058

REACTIONS (2)
  - Dehydration [Unknown]
  - Mental status changes [Unknown]
